FAERS Safety Report 10026853 (Version 3)
Quarter: 2017Q1

REPORT INFORMATION
  Report Type: Spontaneous
  Country: IT (occurrence: IT)
  Receive Date: 20140321
  Receipt Date: 20170123
  Transmission Date: 20170428
  Serious: Yes (Life-Threatening)
  Sender: FDA-Public Use
  Company Number: IT-JNJFOC-20140310704

PATIENT

DRUGS (2)
  1. REACTINE [Suspect]
     Active Substance: CETIRIZINE HYDROCHLORIDE
     Route: 048
  2. REACTINE [Suspect]
     Active Substance: CETIRIZINE HYDROCHLORIDE
     Indication: PRODUCT USED FOR UNKNOWN INDICATION
     Route: 048

REACTIONS (1)
  - Coma [Unknown]
